FAERS Safety Report 8372586-6 (Version None)
Quarter: 2012Q2

REPORT INFORMATION
  Report Type: 
  Country: None (occurrence: None)
  Receive Date: 20120521
  Receipt Date: 20120516
  Transmission Date: 20120825
  Serious: Yes (Other)
  Sender: FDA-Public Use
  Company Number: PHHY2010CA58533

PATIENT
  Sex: Female

DRUGS (1)
  1. ZOLEDRONOC ACID [Suspect]
     Indication: OSTEOPOROSIS
     Dosage: 5 MG PER 100ML
     Route: 042
     Dates: start: 20100901

REACTIONS (6)
  - OEDEMA PERIPHERAL [None]
  - JOINT SWELLING [None]
  - PAIN IN EXTREMITY [None]
  - FRACTURE [None]
  - ARTHRALGIA [None]
  - INFLUENZA [None]
